FAERS Safety Report 11025116 (Version 1)
Quarter: 2015Q2

REPORT INFORMATION
  Report Type: Spontaneous
  Country: GB (occurrence: None)
  Receive Date: 20150410
  Receipt Date: 20150410
  Transmission Date: 20150821
  Serious: Yes (Disabling)
  Sender: FDA-Public Use
  Company Number: GB-H14001-15-00530

PATIENT
  Age: 67 Year
  Sex: Female

DRUGS (5)
  1. SOFRADEX (SOFRACORT) [Concomitant]
  2. CETIRIZINE [Concomitant]
     Active Substance: CETIRIZINE HYDROCHLORIDE
  3. EURAX (CROTAMITON) [Concomitant]
  4. CO-AMOXICLAV [Suspect]
     Active Substance: AMOXICILLIN\CLAVULANIC ACID
     Indication: PRODUCT USED FOR UNKNOWN INDICATION
     Route: 048
     Dates: start: 20150325, end: 201503
  5. LIDOCAINE (LIDOCAINE) [Concomitant]
     Active Substance: LIDOCAINE

REACTIONS (3)
  - Vomiting [None]
  - Malaise [None]
  - Hypersensitivity [None]

NARRATIVE: CASE EVENT DATE: 20150325
